FAERS Safety Report 13144655 (Version 1)
Quarter: 2017Q1

REPORT INFORMATION
  Report Type: Spontaneous
  Country: US (occurrence: US)
  Receive Date: 20170124
  Receipt Date: 20170124
  Transmission Date: 20170428
  Serious: No
  Sender: FDA-Public Use
  Company Number: US-B.I. PHARMACEUTICALS,INC./RIDGEFIELD-2017-BI-002967

PATIENT
  Sex: Male

DRUGS (1)
  1. JARDIANCE [Suspect]
     Active Substance: EMPAGLIFLOZIN
     Indication: GLUCOSE TOLERANCE IMPAIRED
     Dosage: 1 TABLET DAILY;  FORM STRENGTH: 25 MG; FORMULATION: TABLET? ADMINISTRATION CORRECT? YES ?ACTION(S) T
     Route: 048

REACTIONS (3)
  - Pollakiuria [Recovered/Resolved]
  - Nausea [Recovered/Resolved]
  - Off label use [Unknown]
